FAERS Safety Report 13989586 (Version 1)
Quarter: 2017Q3

REPORT INFORMATION
  Report Type: Spontaneous
  Country: US (occurrence: US)
  Receive Date: 20170920
  Receipt Date: 20170920
  Transmission Date: 20171128
  Serious: No
  Sender: FDA-Public Use
  Company Number: US-TEVA-710528USA

PATIENT
  Sex: Female

DRUGS (1)
  1. DIPYRIDAMOLE. [Suspect]
     Active Substance: DIPYRIDAMOLE

REACTIONS (5)
  - Fear [Unknown]
  - Vomiting [Unknown]
  - Balance disorder [Unknown]
  - Weight decreased [Unknown]
  - Dizziness [Unknown]
